FAERS Safety Report 14182660 (Version 1)
Quarter: 2017Q4

REPORT INFORMATION
  Report Type: Spontaneous
  Country: US (occurrence: US)
  Receive Date: 20171113
  Receipt Date: 20171113
  Transmission Date: 20180321
  Serious: No
  Sender: FDA-Public Use
  Company Number: US-ASTRAZENECA-2017SF13248

PATIENT
  Sex: Female

DRUGS (1)
  1. BRILINTA [Suspect]
     Active Substance: TICAGRELOR
     Route: 048

REACTIONS (6)
  - Dyspnoea [Unknown]
  - Urinary tract infection [Unknown]
  - Muscle spasms [Unknown]
  - Palpitations [Unknown]
  - Gait disturbance [Unknown]
  - Abdominal pain upper [Unknown]
